FAERS Safety Report 6922086-2 (Version None)
Quarter: 2010Q3

REPORT INFORMATION
  Report Type: 
  Country: None (occurrence: None)
  Receive Date: 20100812
  Receipt Date: 20100805
  Transmission Date: 20110219
  Serious: Yes (Other)
  Sender: FDA-Public Use
  Company Number: GB-ABBOTT-10P-167-0646318-00

PATIENT
  Sex: Female
  Weight: 50 kg

DRUGS (5)
  1. HUMIRA [Suspect]
     Indication: CROHN'S DISEASE
     Route: 058
     Dates: start: 20100518, end: 20100611
  2. ADCAL-D3 [Concomitant]
     Indication: BONE DISORDER
     Route: 048
     Dates: start: 20100301
  3. ADCAL-D3 [Concomitant]
     Indication: PROPHYLAXIS
  4. MERCAPTOPURINE [Concomitant]
     Indication: CROHN'S DISEASE
     Route: 048
     Dates: start: 20100301
  5. MESALAZINE [Concomitant]
     Indication: CROHN'S DISEASE
     Dosage: AT NIGHT
     Route: 051
     Dates: start: 20100301

REACTIONS (2)
  - RASH [None]
  - WHEEZING [None]
